FAERS Safety Report 6894741-4 (Version None)
Quarter: 2010Q3

REPORT INFORMATION
  Report Type: 
  Country: None (occurrence: None)
  Receive Date: 20100730
  Receipt Date: 20100730
  Transmission Date: 20110219
  Serious: Yes (Other)
  Sender: FDA-Public Use
  Company Number: None

PATIENT
  Age: 58 Year
  Sex: Female
  Weight: 145.151 kg

DRUGS (1)
  1. GLUCOPHAGE [Suspect]
     Indication: BLOOD GLUCOSE INCREASED
     Dosage: 500MG TABLET 2XDAY MOUTH
     Route: 048
     Dates: start: 20100601

REACTIONS (1)
  - DIARRHOEA HAEMORRHAGIC [None]
